FAERS Safety Report 13927374 (Version 1)
Quarter: 2017Q3

REPORT INFORMATION
  Report Type: Spontaneous
  Country: US (occurrence: US)
  Receive Date: 20170831
  Receipt Date: 20170831
  Transmission Date: 20171127
  Serious: Yes (Other)
  Sender: FDA-Public Use
  Company Number: None

PATIENT
  Age: 73 Year
  Sex: Male
  Weight: 81 kg

DRUGS (1)
  1. CREST 3D WHITE GLAMOROUS WHITE [Suspect]
     Active Substance: SODIUM FLUORIDE
     Indication: DENTAL CLEANING
     Dosage: ?          OTHER ROUTE:BRUSHING TEETH?

REACTIONS (2)
  - Product formulation issue [None]
  - Oral mucosal exfoliation [None]

NARRATIVE: CASE EVENT DATE: 20170801
